FAERS Safety Report 8320581-5 (Version None)
Quarter: 2012Q2

REPORT INFORMATION
  Report Type: 
  Country: None (occurrence: None)
  Receive Date: 20120430
  Receipt Date: 20120423
  Transmission Date: 20120825
  Serious: Yes (Hospitalization)
  Sender: FDA-Public Use
  Company Number: DE-PFIZER INC-2012100675

PATIENT
  Age: 10 Year
  Sex: Male
  Weight: 30.5 kg

DRUGS (5)
  1. RITALIN [Concomitant]
     Indication: ATTENTION DEFICIT/HYPERACTIVITY DISORDER
     Dosage: 30 MG, 1X/DAY
  2. ETANERCEPT [Suspect]
     Indication: JUVENILE ARTHRITIS
     Dosage: 3.57 MG, 1X/DAY
     Dates: start: 20110601
  3. OMEPRAZOLE [Concomitant]
     Dosage: 20 MG, 1X/DAY
  4. METHOTREXATE SODIUM [Suspect]
     Indication: JUVENILE ARTHRITIS
     Dosage: 2.07 MG, 1X/DAY
  5. IBUPROFEN [Suspect]
     Indication: JUVENILE ARTHRITIS
     Dosage: 800 MG, 1X/DAY

REACTIONS (2)
  - SYNCOPE [None]
  - VOMITING [None]
